FAERS Safety Report 4751079-9 (Version None)
Quarter: 2005Q3

REPORT INFORMATION
  Report Type: 
  Country: None (occurrence: None)
  Receive Date: 20050822
  Receipt Date: 20050808
  Transmission Date: 20060218
  Serious: Yes (Other)
  Sender: FDA-Public Use
  Company Number: 200513289BCC

PATIENT
  Sex: Male

DRUGS (1)
  1. RID MOUSSE [Suspect]
     Dosage: TOPICAL
     Route: 061

REACTIONS (3)
  - CAUSTIC INJURY [None]
  - PRURITUS [None]
  - SKIN INJURY [None]
